FAERS Safety Report 20788152 (Version 1)
Quarter: 2022Q2

REPORT INFORMATION
  Report Type: Spontaneous
  Country: US (occurrence: None)
  Receive Date: 20220505
  Receipt Date: 20220505
  Transmission Date: 20220720
  Serious: No
  Sender: FDA-Public Use
  Company Number: US-ROCHE-2912833

PATIENT
  Sex: Female

DRUGS (3)
  1. OCREVUS [Suspect]
     Active Substance: OCRELIZUMAB
     Indication: Multiple sclerosis
     Route: 042
     Dates: start: 2018
  2. LUNESTA [Concomitant]
     Active Substance: ESZOPICLONE
     Route: 048
  3. IRON [Concomitant]
     Active Substance: IRON
     Indication: Anaemia
     Route: 065

REACTIONS (3)
  - Anaemia [Not Recovered/Not Resolved]
  - Insomnia [Not Recovered/Not Resolved]
  - Feeling abnormal [Unknown]
